FAERS Safety Report 8139146-3 (Version None)
Quarter: 2012Q1

REPORT INFORMATION
  Report Type: 
  Country: None (occurrence: None)
  Receive Date: 20120215
  Receipt Date: 20120208
  Transmission Date: 20120608
  Serious: Yes (Hospitalization, Other)
  Sender: FDA-Public Use
  Company Number: US-BAYER-2011-075408

PATIENT
  Age: 22 Year
  Sex: Female
  Weight: 103 kg

DRUGS (1)
  1. YAZ [Suspect]

REACTIONS (4)
  - PAIN [None]
  - CHOLECYSTECTOMY [None]
  - PANCREATITIS [None]
  - CHOLECYSTITIS CHRONIC [None]
